FAERS Safety Report 21713566 (Version 1)
Quarter: 2022Q4

REPORT INFORMATION
  Report Type: Spontaneous
  Country: US (occurrence: US)
  Receive Date: 20221212
  Receipt Date: 20221212
  Transmission Date: 20230113
  Serious: Yes (Hospitalization)
  Sender: FDA-Public Use
  Company Number: US-AMERICAN REGENT INC-2021003388

PATIENT
  Age: 84 Year
  Sex: Female

DRUGS (3)
  1. VENOFER [Suspect]
     Active Substance: IRON SUCROSE
     Indication: Anaemia
     Dosage: UNK, ^INFUSIONS FOR THE FIRST TIME FOUR MONTHS^
     Route: 042
     Dates: start: 2021, end: 2021
  2. VENOFER [Suspect]
     Active Substance: IRON SUCROSE
     Dosage: UNK UNK, SINGLE
     Route: 042
     Dates: start: 2021, end: 2021
  3. VENOFER [Suspect]
     Active Substance: IRON SUCROSE
     Dosage: UNK UNK, SINGLE
     Route: 042
     Dates: start: 2021, end: 2021

REACTIONS (1)
  - Diarrhoea [Not Recovered/Not Resolved]

NARRATIVE: CASE EVENT DATE: 20210101
